FAERS Safety Report 8300372-1 (Version None)
Quarter: 2012Q2

REPORT INFORMATION
  Report Type: 
  Country: None (occurrence: None)
  Receive Date: 20120420
  Receipt Date: 20120412
  Transmission Date: 20120825
  Serious: Yes (Other)
  Sender: FDA-Public Use
  Company Number: US-BAYER-2011-004519

PATIENT
  Age: 22 Year
  Sex: Female
  Weight: 66 kg

DRUGS (9)
  1. ENBREL [Concomitant]
     Dosage: 50 MG/ML, OW
     Dates: start: 20070613
  2. NAPROXEN [Concomitant]
     Dosage: 375 MG, BID
     Route: 048
     Dates: start: 20070417
  3. CLOTRIMAZOL [Concomitant]
     Dosage: 1 APPLICATOR FULL HS
     Route: 067
     Dates: start: 20070507
  4. METHOTREXATE [Concomitant]
     Dosage: 2.5 MG,TAB 1 DOSE +#8211; 7 TABS ONCE EVERY WEEK, OW
     Route: 048
     Dates: start: 20070613
  5. NYSTATIN W/TRIAMCINOLONE [NYSTATIN,TRIAMCINOLONE ACETONIDE] [Concomitant]
     Dosage: SPARINGLY 2 TO 4 TIMES DAILY
     Route: 061
     Dates: start: 20070507
  6. TYLENOL (CAPLET) [Concomitant]
     Route: 048
  7. PERCOCET [Concomitant]
     Dosage: 1 TAB
     Route: 048
  8. YASMIN [Suspect]
     Indication: CONTRACEPTION
     Dosage: UNK
     Route: 048
     Dates: start: 20070207, end: 20090101
  9. ROXICET [Concomitant]
     Indication: PAIN
     Dosage: UNK UNK, PRN
     Dates: start: 20070729

REACTIONS (3)
  - PAIN IN EXTREMITY [None]
  - DEEP VEIN THROMBOSIS [None]
  - OEDEMA PERIPHERAL [None]
